FAERS Safety Report 8395522 (Version 2)
Quarter: 2013Q1

REPORT INFORMATION
  Report Type: Spontaneous
  Country: US (occurrence: US)
  Receive Date: 20120208
  Receipt Date: 20130114
  Transmission Date: 20140127
  Serious: Yes (Other)
  Sender: FDA-Public Use
  Company Number: US-ROCHE-1037678

PATIENT
  Age: 16 Year
  Sex: Male

DRUGS (1)
  1. ACCUTANE [Suspect]
     Indication: ACNE CYSTIC
     Route: 065
     Dates: start: 20060124, end: 2006

REACTIONS (4)
  - Colitis ulcerative [Unknown]
  - Gastrointestinal injury [Unknown]
  - Lip dry [Unknown]
  - Xerosis [Unknown]
